FAERS Safety Report 17180217 (Version 3)
Quarter: 2020Q1

REPORT INFORMATION
  Report Type: Spontaneous
  Country: IT (occurrence: IT)
  Receive Date: 20191220
  Receipt Date: 20200221
  Transmission Date: 20200409
  Serious: Yes (Other)
  Sender: FDA-Public Use
  Company Number: IT-TAKEDA-2019TUS072004

PATIENT
  Age: 72 Year
  Sex: Male

DRUGS (2)
  1. BRINTELLIX [Suspect]
     Active Substance: VORTIOXETINE HYDROBROMIDE
     Indication: SEASONAL AFFECTIVE DISORDER
     Dosage: 10 MILLIGRAM, QD
     Route: 065
     Dates: start: 20191021
  2. BISOPROLOL [Suspect]
     Active Substance: BISOPROLOL
     Indication: HYPERTENSION
     Dosage: 1.25 MILLIGRAM, QD
     Route: 065
     Dates: end: 20191126

REACTIONS (2)
  - Product use in unapproved indication [Unknown]
  - Syncope [Recovered/Resolved]

NARRATIVE: CASE EVENT DATE: 20191125
